FAERS Safety Report 19976800 (Version 5)
Quarter: 2021Q4

REPORT INFORMATION
  Report Type: Spontaneous
  Country: JP (occurrence: JP)
  Receive Date: 20211021
  Receipt Date: 20211208
  Transmission Date: 20220303
  Serious: Yes (Hospitalization, Other)
  Sender: FDA-Public Use
  Company Number: JP-TAKEDA-2021TJP106374

PATIENT
  Age: 8 Decade
  Sex: Female

DRUGS (5)
  1. ALUNBRIG [Suspect]
     Active Substance: BRIGATINIB
     Indication: Non-small cell lung cancer
     Dosage: 90 MILLIGRAM, QD
     Route: 048
     Dates: start: 20211001, end: 20211007
  2. ALUNBRIG [Suspect]
     Active Substance: BRIGATINIB
     Dosage: 180 MILLIGRAM, QD
     Route: 048
     Dates: start: 20211008, end: 20211025
  3. ALUNBRIG [Suspect]
     Active Substance: BRIGATINIB
     Dosage: 90 MILLIGRAM, QD
     Route: 048
     Dates: start: 20211105, end: 20211108
  4. ALUNBRIG [Suspect]
     Active Substance: BRIGATINIB
     Dosage: UNK
     Route: 048
     Dates: start: 20211110, end: 20211110
  5. ALUNBRIG [Suspect]
     Active Substance: BRIGATINIB
     Dosage: 90 MILLIGRAM, QD
     Route: 048
     Dates: start: 20211112

REACTIONS (7)
  - Malaise [Recovering/Resolving]
  - Encephalitis [Unknown]
  - Gait disturbance [Not Recovered/Not Resolved]
  - Nausea [Recovering/Resolving]
  - Hypertension [Recovering/Resolving]
  - Vomiting [Unknown]
  - Discomfort [Unknown]

NARRATIVE: CASE EVENT DATE: 20211011
